FAERS Safety Report 8830152 (Version 1)
Quarter: 2012Q4

REPORT INFORMATION
  Report Type: Spontaneous
  Country: US (occurrence: None)
  Receive Date: 20121005
  Receipt Date: 20121005
  Transmission Date: 20130627
  Serious: Yes (Hospitalization, Other)
  Sender: FDA-Public Use
  Company Number: None

PATIENT
  Age: 58 Year
  Sex: Female
  Weight: 90.9 kg

DRUGS (5)
  1. PEGINTRON [Suspect]
     Indication: HEPATITIS C
     Dosage: 150mcg once weekly SQ injection
     Route: 058
     Dates: start: 20120731
  2. REBETOL [Suspect]
     Indication: HEPATITIS C
     Dosage: 600mg BID orally
     Route: 048
     Dates: start: 20120731, end: 20120801
  3. HCTZ [Concomitant]
  4. LISINOPRIL [Concomitant]
  5. NORVASC [Concomitant]

REACTIONS (7)
  - Fatigue [None]
  - Headache [None]
  - Nausea [None]
  - Vomiting [None]
  - Dehydration [None]
  - Abdominal pain [None]
  - Renal failure acute [None]
